FAERS Safety Report 9521808 (Version 1)
Quarter: 2013Q1

REPORT INFORMATION
  Report Type: Spontaneous
  Country: US (occurrence: None)
  Receive Date: 20130305
  Receipt Date: 20130305
  Transmission Date: 20140127
  Serious: Yes (Hospitalization)
  Sender: FDA-Public Use
  Company Number: 163-21880-12071071

PATIENT
  Age: 63 Year
  Sex: Female
  Weight: 126.55 kg

DRUGS (18)
  1. REVLIMID (LENALIDOMIDE) (CAPSULES) [Suspect]
     Indication: PLASMA CELL MYELOMA
     Route: 048
     Dates: start: 200812
  2. PENICILLIN(PENICILLIN NOS)(UNKNOWN) [Concomitant]
  3. KEFLEX(CEFALEXIN MONOHYDRATE)(UNKNOWN) [Concomitant]
  4. ATIVAN(LORAZEPAM)(UNKNOWN) [Concomitant]
  5. CELEXA(CITALOPRAM HYDROBROMIDE)(UNKNOWN) [Concomitant]
  6. COLACE(DOCUSATE SODIUM)(UNKNOWN) [Concomitant]
  7. COUMADIN(WARFARIN SODIUM)(UNKNOWN) [Concomitant]
  8. CYMBALTA(DULOXETINE HYDROCHLORIDE)(UNKNOWN) [Concomitant]
  9. DILAUDID(HYDROMORPHONE HYDROCHLORIDE)(UNKNOWN) [Concomitant]
  10. DURAGESIC(FENTANYL)(UNKNOWN) [Concomitant]
  11. FLEXERIL(CYCLOBENZAPRINE HYDROCHLORIDE)(UNKNOWN) [Concomitant]
  12. IMODIUM(LOPERAMIDE HYDROCHLORIDE)(UNKNOWN) [Concomitant]
  13. METOPROLOL(METOPROLOL)(UNKNOWN) [Concomitant]
  14. MULTIVITAMINS(MULTIVITAMINS)(UNKNOWN) [Concomitant]
  15. PERCOCET(OXYCOCET)(UNKNOWN) [Concomitant]
  16. PROTONIX (UNKNOWN) [Concomitant]
  17. TUMS(CALCIUM CARBONATE)(UNKNOWN) [Concomitant]
  18. VITAMIN D(ERGOCALCIFEROL)(UNKNOWN) [Concomitant]

REACTIONS (1)
  - Infection [None]
